FAERS Safety Report 5494697-5 (Version None)
Quarter: 2007Q4

REPORT INFORMATION
  Report Type: 
  Country: None (occurrence: None)
  Receive Date: 20071015
  Receipt Date: 20070828
  Transmission Date: 20080405
  Serious: No
  Sender: FDA-Public Use
  Company Number: 2007SP003028

PATIENT
  Sex: Male

DRUGS (3)
  1. LUNESTA [Suspect]
     Indication: INSOMNIA
     Dosage: 3  MG; ORAL
     Route: 048
     Dates: start: 20070101, end: 20070101
  2. NSAID'S [Concomitant]
  3. OPIUM ALKALOIDS AND  DERIVATIVES [Concomitant]

REACTIONS (1)
  - DYSGEUSIA [None]
